FAERS Safety Report 21355311 (Version 1)
Quarter: 2022Q3

REPORT INFORMATION
  Report Type: Spontaneous
  Country: US (occurrence: None)
  Receive Date: 20220919
  Receipt Date: 20220919
  Transmission Date: 20221027
  Serious: No
  Sender: FDA-Public Use
  Company Number: None

PATIENT
  Age: 16 Year
  Sex: Male

DRUGS (1)
  1. DUPIXENT [Suspect]
     Active Substance: DUPILUMAB
     Indication: Dermatitis atopic
     Dosage: INJECT 2 PENS, 600 MG UNDER THE SKIN ON DAY 1, THEN INJECT 1 PEN, 300 MG ON DAY 15, THEN 1 PEN, 300
     Route: 058
     Dates: start: 20220825

REACTIONS (3)
  - Device defective [None]
  - Needle issue [None]
  - Product leakage [None]

NARRATIVE: CASE EVENT DATE: 20220912
